FAERS Safety Report 5097021-5 (Version None)
Quarter: 2006Q3

REPORT INFORMATION
  Report Type: 
  Country: None (occurrence: None)
  Receive Date: 20060824
  Receipt Date: 20060807
  Transmission Date: 20061208
  Serious: Yes (Other)
  Sender: FDA-Public Use
  Company Number: CHPA2006US07976

PATIENT
  Age: 46 Year
  Sex: Female
  Weight: 47.6 kg

DRUGS (6)
  1. NICOTINE [Suspect]
     Indication: SMOKING CESSATION THERAPY
     Dosage: 21 MG, QD, TRANSDERMAL
     Route: 062
     Dates: start: 20060807
  2. ADVAIR (FLUTICASONE PROPONATE, SALMETEROL XINAFOATE) [Concomitant]
  3. LEXAPRO (ESCITALOPRAM OXALATE) [Concomitant]
  4. EXCEDRIN MIGRAINE (ACETALYSALICYLIC ACID, CAFFEINE, PARACETAMOL) [Concomitant]
  5. PREMARIN  /SCH/ (ESTROGENS CONJUGATED, MEDROGESTONE) [Concomitant]
  6. BONIVA (IBANDRONATE SODIUM) [Concomitant]

REACTIONS (1)
  - PAIN IN EXTREMITY [None]
